FAERS Safety Report 13674544 (Version 1)
Quarter: 2017Q2

REPORT INFORMATION
  Report Type: Spontaneous
  Country: JP (occurrence: JP)
  Receive Date: 20170621
  Receipt Date: 20170621
  Transmission Date: 20170830
  Serious: Yes (Other)
  Sender: FDA-Public Use
  Company Number: JP-SA-2015SA178761

PATIENT
  Age: 50 Year
  Sex: Female
  Weight: 47.5 kg

DRUGS (11)
  1. FLUDARABINE PHOSPHATE. [Suspect]
     Active Substance: FLUDARABINE PHOSPHATE
     Indication: BONE MARROW CONDITIONING REGIMEN
     Dosage: DAY-6 TO -2
     Route: 065
  2. MORPHINE SALT NOT SPECIFIED [Suspect]
     Active Substance: MORPHINE
     Indication: DIARRHOEA
     Route: 065
  3. MORPHINE SALT NOT SPECIFIED [Suspect]
     Active Substance: MORPHINE
     Indication: DIARRHOEA
     Route: 065
  4. MELPHALAN. [Suspect]
     Active Substance: MELPHALAN
     Indication: BONE MARROW CONDITIONING REGIMEN
     Dosage: DAY-3 TO -2
     Route: 065
  5. MORPHINE SALT NOT SPECIFIED [Suspect]
     Active Substance: MORPHINE
     Indication: DIARRHOEA
     Route: 065
  6. APREPITANT. [Concomitant]
     Active Substance: APREPITANT
     Dosage: ON DAY -6
  7. MICAFUNGIN [Concomitant]
     Active Substance: MICAFUNGIN
     Indication: ANTIFUNGAL PROPHYLAXIS
     Dosage: DRIP  INFUSION
     Route: 042
  8. METHOTREXATE. [Concomitant]
     Active Substance: METHOTREXATE
     Indication: PROPHYLAXIS AGAINST GRAFT VERSUS HOST DISEASE
     Dosage: 15 MG/ BODY ON DAY 1, 10 MG/ BODY ON DAY 3 AND DAY 6
  9. TACROLIMUS. [Concomitant]
     Active Substance: TACROLIMUS
     Indication: PROPHYLAXIS AGAINST GRAFT VERSUS HOST DISEASE
     Dosage: STARTED FROM DAY -1
  10. GRANISETRON [Concomitant]
     Active Substance: GRANISETRON
     Dosage: ON DAYS -6 TO -1
     Route: 048
  11. APREPITANT. [Concomitant]
     Active Substance: APREPITANT
     Dosage: ON DAY -5 TO -2

REACTIONS (7)
  - Condition aggravated [Recovered/Resolved]
  - Proctalgia [Unknown]
  - Oral pain [Recovering/Resolving]
  - Diarrhoea [Recovering/Resolving]
  - Nausea [Recovered/Resolved]
  - Mucous membrane disorder [Recovering/Resolving]
  - Vomiting [Recovered/Resolved]
